FAERS Safety Report 6380432-5 (Version None)
Quarter: 2009Q3

REPORT INFORMATION
  Report Type: 
  Country: None (occurrence: None)
  Receive Date: 20090929
  Receipt Date: 20090917
  Transmission Date: 20100115
  Serious: Yes (Other)
  Sender: FDA-Public Use
  Company Number: PHHY2009IT38474

PATIENT
  Sex: Female

DRUGS (1)
  1. ZOMETA [Suspect]
     Indication: MULTIPLE MYELOMA
     Dosage: 4 MG, QMO
     Route: 042
     Dates: start: 20020401, end: 20050731

REACTIONS (3)
  - MAXILLOFACIAL OPERATION [None]
  - OSTEONECROSIS [None]
  - PLASTIC SURGERY TO THE FACE [None]
